FAERS Safety Report 24015476 (Version 1)
Quarter: 2024Q2

REPORT INFORMATION
  Report Type: Other
  Country: ES (occurrence: ES)
  Receive Date: 20240626
  Receipt Date: 20240626
  Transmission Date: 20240715
  Serious: Yes (Hospitalization, Other)
  Sender: FDA-Public Use
  Company Number: None

PATIENT
  Age: 61 Year
  Sex: Female

DRUGS (8)
  1. MIRABEGRON [Suspect]
     Active Substance: MIRABEGRON
     Indication: Urinary incontinence
     Dosage: 50 MG, ONCE DAILY (EVERY 24 HOURS)
     Route: 048
     Dates: start: 20240509
  2. PARACETAMOL PHARMA COMBIX [Concomitant]
     Indication: Pain
     Dosage: 1 G, THRICE DAILY (1.0 G WITH BREAKFAST, LUNCH AND DINNER)
     Route: 048
     Dates: start: 20230622
  3. SIMVASTATIN [Concomitant]
     Active Substance: SIMVASTATIN
     Indication: Type IIa hyperlipidaemia
     Dosage: 10 MG, OTHER (10.0 MG CE)
     Route: 048
     Dates: start: 20130219
  4. CALCIUM CARBONATE\CHOLECALCIFEROL [Concomitant]
     Active Substance: CALCIUM CARBONATE\CHOLECALCIFEROL
     Indication: Osteoporosis
     Dosage: UNK UNK, OTHER (1.0 TABLET DE)
     Route: 048
     Dates: start: 20210925
  5. ESCITALOPRAM OXALATE [Concomitant]
     Active Substance: ESCITALOPRAM OXALATE
     Indication: Depression
     Dosage: 20 MG, OTHER (DE)
     Route: 048
     Dates: start: 20230329
  6. ASPIRIN [Concomitant]
     Active Substance: ASPIRIN
     Indication: Essential hypertension
     Dosage: 100 MG, OTHER (DE)
     Route: 048
     Dates: start: 20240109
  7. FOSAMAX [Concomitant]
     Active Substance: ALENDRONATE SODIUM
     Indication: Osteoporosis
     Route: 048
     Dates: start: 20211105
  8. TAMOXIFEN CITRATE [Concomitant]
     Active Substance: TAMOXIFEN CITRATE
     Indication: Breast cancer
     Dosage: 20 MG, ONCE DAILY (EVERY 24 HOURS)
     Route: 048
     Dates: start: 20220402

REACTIONS (1)
  - Toxic skin eruption [Recovering/Resolving]

NARRATIVE: CASE EVENT DATE: 20240509
